FAERS Safety Report 4271548-8 (Version None)
Quarter: 2004Q1

REPORT INFORMATION
  Report Type: 
  Country: None (occurrence: None)
  Receive Date: 20040113
  Receipt Date: 20031231
  Transmission Date: 20041129
  Serious: Yes (Hospitalization)
  Sender: FDA-Public Use
  Company Number: HQWYE609410SEP03

PATIENT
  Age: 5 Year
  Sex: Male
  Weight: 24 kg

DRUGS (8)
  1. RAPAMUNE [Suspect]
     Indication: IMMUNOSUPPRESSANT DRUG THERAPY
     Dosage: 4.5 MG DAILY PER GASTROSTOMY TUBE
     Dates: start: 20030523, end: 20030908
  2. RAPAMUNE [Suspect]
     Indication: PROPHYLAXIS AGAINST TRANSPLANT REJECTION
     Dosage: 4.5 MG DAILY PER GASTROSTOMY TUBE
     Dates: start: 20030523, end: 20030908
  3. PREDNISOLONE [Suspect]
     Indication: IMMUNOSUPPRESSANT DRUG THERAPY
     Dosage: 3.9 MG DAILY PER GASTROSTOMY TUBE,
     Dates: start: 20030524
  4. PROGRAF [Suspect]
     Indication: IMMUNOSUPPRESSANT DRUG THERAPY
     Dosage: 11 MG DAILY PER GASTROSTOMY TUBE,
     Dates: start: 20030523
  5. FEOSOL (FERROUS SULFATE) [Concomitant]
  6. MYLICON (SIMETHICONE) [Concomitant]
  7. ZANTAC (RANITIDINE HYDROCHLOLRIDE) [Concomitant]
  8. CYTOVENE [Concomitant]

REACTIONS (13)
  - ABDOMINAL PAIN [None]
  - ANOREXIA [None]
  - DEHYDRATION [None]
  - HAEMATOCRIT DECREASED [None]
  - HAEMOGLOBIN DECREASED [None]
  - LACERATION [None]
  - MARKEDLY REDUCED DIETARY INTAKE [None]
  - NEPHROPATHY [None]
  - NEUTROPENIA [None]
  - PAIN IN EXTREMITY [None]
  - PYREXIA [None]
  - URINE OUTPUT DECREASED [None]
  - VIRAL INFECTION [None]
